FAERS Safety Report 6814091-1 (Version None)
Quarter: 2010Q3

REPORT INFORMATION
  Report Type: 
  Country: None (occurrence: None)
  Receive Date: 20100702
  Receipt Date: 20090916
  Transmission Date: 20110219
  Serious: No
  Sender: FDA-Public Use
  Company Number: A0807671A

PATIENT
  Age: 78 Year
  Sex: Female

DRUGS (7)
  1. ADVAIR DISKUS 100/50 [Suspect]
     Indication: ASTHMA
     Dosage: 1PUFF TWICE PER DAY
     Route: 055
  2. ALBUTEROL [Concomitant]
  3. TRAVATAN [Concomitant]
  4. NEBIVOLOL [Concomitant]
  5. ATIVAN [Concomitant]
  6. CIPRO [Concomitant]
  7. FOSAMAX [Concomitant]

REACTIONS (1)
  - PRURITUS [None]
